FAERS Safety Report 8259621-0 (Version None)
Quarter: 2012Q2

REPORT INFORMATION
  Report Type: 
  Country: None (occurrence: None)
  Receive Date: 20120404
  Receipt Date: 20120402
  Transmission Date: 20120825
  Serious: Yes (Death)
  Sender: FDA-Public Use
  Company Number: PHEH2012US006122

PATIENT
  Sex: Female

DRUGS (6)
  1. NASAL SALINE [Concomitant]
     Dosage: UNK UKN, UNK
     Dates: start: 20110112
  2. VITAMINS WITH MINERALS [Concomitant]
     Dosage: ONCE DAILY
     Dates: start: 20110112
  3. LORATADINE [Concomitant]
     Dosage: 1 DF DAILY
     Dates: start: 20110112
  4. RECLAST [Suspect]
     Indication: OSTEOPOROSIS
     Dosage: 5 MG/100 ML, ANNUALLY
     Route: 042
     Dates: start: 20110610
  5. ZONISAMIDE [Concomitant]
     Dosage: 100 MG, TID
     Dates: start: 20110112
  6. CALCIUM D [Concomitant]
     Dosage: 1200, ONCE DAILY
     Dates: start: 20110112

REACTIONS (1)
  - DEATH [None]
